FAERS Safety Report 5399065-2 (Version None)
Quarter: 2007Q3

REPORT INFORMATION
  Report Type: 
  Country: None (occurrence: None)
  Receive Date: 20070725
  Receipt Date: 20070725
  Transmission Date: 20080115
  Serious: Yes (Hospitalization)
  Sender: FDA-Public Use
  Company Number: None

PATIENT
  Sex: Male
  Weight: 78.0187 kg

DRUGS (1)
  1. SORAFENIB 200 MG BID [Suspect]
     Indication: PULMONARY HYPERTENSION
     Dosage: ORAL BID 5 MG
     Route: 048

REACTIONS (3)
  - ACCIDENT [None]
  - CATHETER RELATED COMPLICATION [None]
  - PALLOR [None]
